FAERS Safety Report 8343366-2 (Version None)
Quarter: 2012Q2

REPORT INFORMATION
  Report Type: 
  Country: None (occurrence: None)
  Receive Date: 20120508
  Receipt Date: 20120427
  Transmission Date: 20120825
  Serious: Yes (Other)
  Sender: FDA-Public Use
  Company Number: CA-JNJFOC-20120414108

PATIENT
  Sex: Female
  Weight: 80.3 kg

DRUGS (2)
  1. MESALAMINE [Concomitant]
     Route: 065
  2. REMICADE [Suspect]
     Indication: COLITIS ULCERATIVE
     Route: 042

REACTIONS (3)
  - HAEMATOCHEZIA [None]
  - FREQUENT BOWEL MOVEMENTS [None]
  - PAIN [None]
